FAERS Safety Report 8004863-2 (Version None)
Quarter: 2011Q4

REPORT INFORMATION
  Report Type: 
  Country: None (occurrence: None)
  Receive Date: 20111223
  Receipt Date: 20111220
  Transmission Date: 20120403
  Serious: Yes (Death)
  Sender: FDA-Public Use
  Company Number: IL-B.I. PHARMACEUTICALS,INC./RIDGEFIELD-2011-AP-00713RI

PATIENT
  Age: 64 Year
  Sex: Female

DRUGS (2)
  1. NOT FURTHER SPECIFIED CARDIAC DRUGS [Concomitant]
  2. PRADAXA [Suspect]
     Indication: CARDIAC VALVE DISEASE
     Dosage: 300 MG

REACTIONS (3)
  - DIARRHOEA [None]
  - DEATH [None]
  - DEHYDRATION [None]
